FAERS Safety Report 9461854 (Version 2)
Quarter: 2013Q3

REPORT INFORMATION
  Report Type: Spontaneous
  Country: CA (occurrence: CA)
  Receive Date: 20130816
  Receipt Date: 20130926
  Transmission Date: 20140515
  Serious: Yes (Death)
  Sender: FDA-Public Use
  Company Number: CA-SANOFI-AVENTIS-2013SA081243

PATIENT
  Age: 91 Year
  Sex: Female
  Weight: 70 kg

DRUGS (15)
  1. ENOXAPARIN SODIUM [Suspect]
     Indication: ACUTE CORONARY SYNDROME
     Route: 058
     Dates: start: 2013, end: 2013
  2. ANTIINFECTIVES [Concomitant]
     Indication: PROPHYLAXIS
  3. ASPIRIN [Concomitant]
     Dosage: STRENGTH: 325 MG
     Route: 048
  4. ATORVASTATIN CALCIUM [Concomitant]
     Dosage: STRENGTH: 20 MG
     Route: 048
  5. CALCIUM [Concomitant]
     Route: 048
  6. CARVEDILOL [Concomitant]
     Route: 048
  7. CEFTRIAXONE [Concomitant]
     Route: 030
     Dates: start: 20130322
  8. CLOPIDOGREL [Concomitant]
     Dosage: STRENGTH: 75 MG
     Route: 048
  9. FUROSEMIDE [Concomitant]
     Route: 048
  10. LIBRIUM [Concomitant]
     Dosage: STRENGTH: 10 MG
     Route: 048
  11. GLYCERYL TRINITRATE [Concomitant]
     Dosage: PATCH
  12. SPIRONOLACTONE [Concomitant]
     Route: 048
  13. VALSARTAN [Concomitant]
     Route: 048
  14. VITAMIN D [Concomitant]
     Dosage: DOSE:1000 UNIT(S)
     Route: 048
  15. ANTIBIOTICS [Concomitant]

REACTIONS (3)
  - Blood pressure decreased [Fatal]
  - Hypovolaemic shock [Fatal]
  - Retroperitoneal haemorrhage [Fatal]
